FAERS Safety Report 8739208 (Version 2)
Quarter: 2012Q4

REPORT INFORMATION
  Report Type: 
  Country: CA (occurrence: CA)
  Receive Date: 20120823
  Receipt Date: 20121011
  Transmission Date: 20130627
  Serious: Yes (Hospitalization)
  Sender: FDA-Public Use
  Company Number: CA-OPTIMER-20120112

PATIENT
  Age: 76 None
  Sex: Female

DRUGS (2)
  1. DIFICID [Suspect]
     Indication: CLOSTRIDIUM DIFFICILE COLITIS
     Dosage: 200 mg, bid
     Route: 048
     Dates: start: 20120803, end: 20120812
  2. DIFICID [Suspect]
     Dosage: 200 mg, bid
     Route: 048
     Dates: start: 20121002

REACTIONS (5)
  - Clostridium difficile colitis [Not Recovered/Not Resolved]
  - Disease recurrence [Not Recovered/Not Resolved]
  - Diarrhoea [Recovered/Resolved]
  - Infection [Unknown]
  - Cystitis [Unknown]
